FAERS Safety Report 22861318 (Version 2)
Quarter: 2024Q2

REPORT INFORMATION
  Report Type: Spontaneous
  Country: US (occurrence: US)
  Receive Date: 20230824
  Receipt Date: 20240401
  Transmission Date: 20240716
  Serious: Yes (Death, Hospitalization, Other)
  Sender: FDA-Public Use
  Company Number: US-GLAXOSMITHKLINE-US2023113438

PATIENT

DRUGS (1)
  1. BREO ELLIPTA [Suspect]
     Active Substance: FLUTICASONE FUROATE\VILANTEROL TRIFENATATE
     Indication: Product used for unknown indication
     Dosage: 1 PUFF(S), QD (200-25MCG)
     Route: 055
     Dates: start: 2021

REACTIONS (5)
  - Death [Fatal]
  - Cerebrovascular accident [Unknown]
  - Pneumonia [Unknown]
  - Dementia [Unknown]
  - Hospice care [Unknown]

NARRATIVE: CASE EVENT DATE: 20211115
